FAERS Safety Report 24630516 (Version 1)
Quarter: 2024Q4

REPORT INFORMATION
  Report Type: Spontaneous
  Country: US (occurrence: None)
  Receive Date: 20241115
  Receipt Date: 20241115
  Transmission Date: 20250114
  Serious: Yes (Death)
  Sender: Public
  Company Number: None

PATIENT
  Age: 62 Year
  Sex: Male

DRUGS (1)
  1. MAVYRET [Suspect]
     Active Substance: GLECAPREVIR\PIBRENTASVIR
     Indication: Hepatitis C
     Dosage: 3 TABLETS (100-40 MG) DAILY ORAL
     Route: 048
     Dates: start: 20240524, end: 20240719

REACTIONS (1)
  - Failure to thrive [None]

NARRATIVE: CASE EVENT DATE: 20240928
